FAERS Safety Report 4590692-9 (Version None)
Quarter: 2005Q1

REPORT INFORMATION
  Report Type: 
  Country: None (occurrence: None)
  Receive Date: 20050224
  Receipt Date: 20050111
  Transmission Date: 20050727
  Serious: Yes (Hospitalization)
  Sender: FDA-Public Use
  Company Number: DE-MERCK-0501DEU00138

PATIENT
  Age: 11 Year
  Sex: Female

DRUGS (1)
  1. SINGULAIR [Suspect]
     Indication: BRONCHITIS
     Route: 048
     Dates: start: 20041125

REACTIONS (9)
  - AGGRESSION [None]
  - BLOOD GLUCOSE FLUCTUATION [None]
  - CHEST DISCOMFORT [None]
  - ECZEMA [None]
  - RED BLOOD CELLS URINE POSITIVE [None]
  - RENAL PAIN [None]
  - TACHYCARDIA [None]
  - VISION BLURRED [None]
  - WHITE BLOOD CELLS URINE POSITIVE [None]
